FAERS Safety Report 6343820-9 (Version None)
Quarter: 2009Q3

REPORT INFORMATION
  Report Type: 
  Country: None (occurrence: None)
  Receive Date: 20090821
  Receipt Date: 20090528
  Transmission Date: 20100115
  Serious: No
  Sender: FDA-Public Use
  Company Number: 8047053

PATIENT
  Age: 61 Year
  Sex: Female
  Weight: 65.9 kg

DRUGS (10)
  1. CIMZIA [Suspect]
     Indication: CROHN'S DISEASE
     Dosage: 400 MG SC
     Route: 058
     Dates: start: 20090420
  2. PENTASA [Concomitant]
  3. VITAMIN B-12 [Concomitant]
  4. PRILOSEC [Concomitant]
  5. NORVASC [Concomitant]
  6. TRICOR [Concomitant]
  7. LEVSIN [Concomitant]
  8. CALTRATE + VITAMIN D [Concomitant]
  9. DARVOCET-N 100 [Concomitant]
  10. ALBUTEROL [Concomitant]

REACTIONS (1)
  - ANXIETY [None]
